FAERS Safety Report 4327163-0 (Version None)
Quarter: 2004Q1

REPORT INFORMATION
  Report Type: 
  Country: None (occurrence: None)
  Receive Date: 20040330
  Receipt Date: 20040322
  Transmission Date: 20041129
  Serious: Yes (Life-Threatening)
  Sender: FDA-Public Use
  Company Number: KE-GLAXOSMITHKLINE-B0327438A

PATIENT
  Age: 29 Year
  Sex: Female

DRUGS (6)
  1. ZIDOVUDINE [Suspect]
     Indication: HIV INFECTION
     Dates: start: 20020911
  2. LAMIVUDINE [Suspect]
     Indication: HIV INFECTION
     Dates: start: 20020911
  3. RITONAVIR [Suspect]
     Indication: HIV INFECTION
  4. SAQUINAVIR [Suspect]
     Indication: HIV INFECTION
     Dates: start: 20020911
  5. CO-TRIMOXAZOLE [Concomitant]
     Dates: start: 20040106
  6. ACETAMINOPHEN [Concomitant]
     Dates: start: 20040106, end: 20040113

REACTIONS (3)
  - CEREBRAL INFARCTION [None]
  - CEREBROVASCULAR ACCIDENT [None]
  - TRANSIENT ISCHAEMIC ATTACK [None]
